FAERS Safety Report 7942327-2 (Version None)
Quarter: 2011Q4

REPORT INFORMATION
  Report Type: 
  Country: None (occurrence: None)
  Receive Date: 20111128
  Receipt Date: 20111117
  Transmission Date: 20120403
  Serious: Yes (Other)
  Sender: FDA-Public Use
  Company Number: US-BAYER-200939269NA

PATIENT
  Age: 48 Year
  Sex: Male
  Weight: 95.238 kg

DRUGS (13)
  1. TRASYLOL [Suspect]
     Indication: AORTIC VALVE REPLACEMENT
  2. COREG [Concomitant]
     Dosage: 3.125, BID
     Route: 048
     Dates: start: 20011103
  3. TRASYLOL [Suspect]
     Indication: CORONARY ARTERY BYPASS
     Dosage: INITIAL (TEST) DOSE: 1 ML
     Route: 042
     Dates: start: 20011106
  4. GENTAMICIN [Concomitant]
     Dosage: 1 MG, UNK
     Route: 042
     Dates: start: 20011105
  5. PLAVIX [Concomitant]
     Dosage: 75 MG, QD
     Route: 048
     Dates: start: 20000717
  6. HEPARIN [Concomitant]
     Dosage: UNK
     Dates: start: 20011103, end: 20011105
  7. LASIX [Concomitant]
     Dosage: 40 MG, UNK
     Route: 042
     Dates: start: 20011103
  8. LEVAQUIN [Concomitant]
     Dosage: 500 MG, QD
     Dates: start: 20011103
  9. ACETYLSALICYLIC ACID SRT [Concomitant]
     Dosage: 325 MG, UNK
     Route: 048
     Dates: start: 20011103
  10. LOPRESSOR [Concomitant]
     Dosage: 5 MG, UNK
     Route: 042
     Dates: start: 20011102
  11. ZESTRIL [Concomitant]
     Dosage: 5 MG, UNK
     Route: 048
     Dates: start: 20011029
  12. UNASYN [Concomitant]
     Dosage: 3 MG EVERY 6 HOURS
     Route: 042
     Dates: start: 20011105
  13. VANCOMYCIN [Concomitant]
     Dosage: UNK
     Dates: start: 20011029

REACTIONS (7)
  - RENAL FAILURE [None]
  - CEREBROVASCULAR ACCIDENT [None]
  - PARALYSIS [None]
  - EMOTIONAL DISTRESS [None]
  - INJURY [None]
  - ANXIETY [None]
  - PAIN [None]
